FAERS Safety Report 9804692 (Version 1)
Quarter: 2014Q1

REPORT INFORMATION
  Report Type: Report from Study
  Country: US (occurrence: US)
  Receive Date: 20140108
  Receipt Date: 20140108
  Transmission Date: 20141002
  Serious: Yes (Hospitalization)
  Sender: FDA-Public Use
  Company Number: US-US-EMD SERONO, INC.-7261290

PATIENT
  Age: 58 Year
  Sex: Male

DRUGS (2)
  1. REBIF [Suspect]
     Indication: MULTIPLE SCLEROSIS
     Route: 058
     Dates: start: 20130904
  2. LEVEMIR [Concomitant]
     Indication: DIABETES MELLITUS
     Dates: start: 1994

REACTIONS (5)
  - Fall [Unknown]
  - Red blood cell abnormality [Unknown]
  - Red blood cell count decreased [Recovering/Resolving]
  - Inflammation [Unknown]
  - Muscular weakness [Not Recovered/Not Resolved]
